FAERS Safety Report 4989808-1 (Version None)
Quarter: 2006Q2

REPORT INFORMATION
  Report Type: 
  Country: None (occurrence: None)
  Receive Date: 20060428
  Receipt Date: 20060420
  Transmission Date: 20061013
  Serious: Yes (Hospitalization)
  Sender: FDA-Public Use
  Company Number: 2006054538

PATIENT
  Age: 76 Year
  Sex: Male

DRUGS (6)
  1. PHENYTOIN [Suspect]
     Indication: TRIGEMINAL NEURALGIA
     Dosage: 230 MG (230 MG, 1 IN 1 D),ORAL
     Route: 048
     Dates: start: 20050601, end: 20050926
  2. VALPROIC ACID [Concomitant]
  3. BERODUAL (FENOTEROL HYDROBROMIDE, IPARTROPIUM BROMIDE) [Concomitant]
  4. NORVASC [Concomitant]
  5. SERETIDE (FLUTICASONE PROPIONATE, SALMETEROL XINAFOATE) [Concomitant]
  6. BACLOFEN [Concomitant]

REACTIONS (2)
  - PRURITUS [None]
  - RASH MACULO-PAPULAR [None]
